FAERS Safety Report 25138395 (Version 1)
Quarter: 2025Q1

REPORT INFORMATION
  Report Type: Spontaneous
  Country: US (occurrence: US)
  Receive Date: 20250330
  Receipt Date: 20250330
  Transmission Date: 20250409
  Serious: No
  Sender: TEVA
  Company Number: US-TEVA-VS-3310583

PATIENT
  Age: 75 Year
  Sex: Male
  Weight: 64.455 kg

DRUGS (2)
  1. AUSTEDO XR [Suspect]
     Active Substance: DEUTETRABENAZINE
     Indication: Chorea
     Route: 048
  2. AUSTEDO XR [Suspect]
     Active Substance: DEUTETRABENAZINE
     Indication: Chorea
     Route: 048

REACTIONS (3)
  - Dyskinesia [Unknown]
  - Adverse drug reaction [Unknown]
  - Off label use [Unknown]
